FAERS Safety Report 6785155-6 (Version None)
Quarter: 2010Q2

REPORT INFORMATION
  Report Type: 
  Country: None (occurrence: None)
  Receive Date: 20100618
  Receipt Date: 20100604
  Transmission Date: 20101027
  Serious: Yes (Other)
  Sender: FDA-Public Use
  Company Number: US-1182213

PATIENT
  Age: 62 Year
  Sex: Male
  Weight: 68.0396 kg

DRUGS (5)
  1. TRAVATAN [Suspect]
     Indication: GLAUCOMA
     Dosage: (1 GTT BID OU OPHTHALMIC), (1 GTT 1X/3 DAYS OU OPHTHALMIC)
     Route: 047
     Dates: start: 20090101
  2. NEVANAC [Suspect]
     Indication: RETINAL DISORDER
     Dosage: (OPHTHALMIC)
     Route: 047
  3. PAXIL [Concomitant]
  4. CLONAZEPAM [Concomitant]
  5. CLOMIPRAMINE [Concomitant]

REACTIONS (9)
  - DRUG INTOLERANCE [None]
  - EYE PAIN [None]
  - EYE PRURITUS [None]
  - FOREIGN BODY SENSATION IN EYES [None]
  - HEADACHE [None]
  - LACRIMATION INCREASED [None]
  - OCULAR HYPERAEMIA [None]
  - PHOTOPHOBIA [None]
  - RETINITIS [None]
